FAERS Safety Report 4369864-4 (Version None)
Quarter: 2004Q2

REPORT INFORMATION
  Report Type: 
  Country: None (occurrence: None)
  Receive Date: 20040527
  Receipt Date: 20040427
  Transmission Date: 20050107
  Serious: Yes (Hospitalization)
  Sender: FDA-Public Use
  Company Number: JP_040402963

PATIENT
  Age: 67 Year
  Sex: Male
  Weight: 49 kg

DRUGS (3)
  1. GEMZAR [Suspect]
     Indication: NON-SMALL CELL LUNG CANCER RECURRENT
     Dosage: 1150 MG OTHER
     Route: 042
     Dates: start: 20030303, end: 20030403
  2. DOCETAXEL [Concomitant]
     Route: 042
  3. HALCION [Concomitant]

REACTIONS (1)
  - INTERSTITIAL LUNG DISEASE [None]
